FAERS Safety Report 7417287-3 (Version None)
Quarter: 2011Q2

REPORT INFORMATION
  Report Type: 
  Country: None (occurrence: None)
  Receive Date: 20110415
  Receipt Date: 20110404
  Transmission Date: 20111010
  Serious: Yes (Congenital Anomaly, Other)
  Sender: FDA-Public Use
  Company Number: FR-BRISTOL-MYERS SQUIBB COMPANY-15668510

PATIENT

DRUGS (3)
  1. GLUCOPHAGE [Suspect]
     Route: 064
  2. APIDRA [Concomitant]
     Route: 064
     Dates: start: 20101201, end: 20110119
  3. LEVEMIR [Concomitant]
     Dosage: 24 IU IN MORNING,30 IU IN EVENING
     Route: 064
     Dates: start: 20110101

REACTIONS (1)
  - MULTIPLE CONGENITAL ABNORMALITIES [None]
